FAERS Safety Report 6552665-6 (Version None)
Quarter: 2010Q1

REPORT INFORMATION
  Report Type: 
  Country: None (occurrence: None)
  Receive Date: 20100126
  Receipt Date: 20100119
  Transmission Date: 20100710
  Serious: Yes (Death)
  Sender: FDA-Public Use
  Company Number: B0589650A

PATIENT
  Sex: Female
  Weight: 49 kg

DRUGS (2)
  1. TYKERB [Suspect]
     Indication: BREAST CANCER
     Dosage: 1250MG PER DAY
     Route: 048
     Dates: start: 20090806, end: 20090914
  2. XELODA [Suspect]
     Indication: BREAST CANCER
     Dosage: 1200MG PER DAY
     Route: 048
     Dates: start: 20090811, end: 20090913

REACTIONS (5)
  - AMMONIA INCREASED [None]
  - HEPATIC FAILURE [None]
  - JAUNDICE [None]
  - RASH [None]
  - RENAL CYST [None]
